FAERS Safety Report 6299781-4 (Version None)
Quarter: 2009Q3

REPORT INFORMATION
  Report Type: 
  Country: None (occurrence: None)
  Receive Date: 20090804
  Receipt Date: 20090724
  Transmission Date: 20100115
  Serious: Yes (Life-Threatening, Hospitalization)
  Sender: FDA-Public Use
  Company Number: UTC-000609

PATIENT
  Age: 36 Year
  Sex: Male
  Weight: 81.6 kg

DRUGS (10)
  1. REMODULIN [Suspect]
     Indication: PULMONARY ARTERIAL HYPERTENSION
     Dosage: 43.2 UG/KG (0.03 UG/KG, 1 IN  1 MIN), INTRAVENOUS
     Route: 042
     Dates: start: 20081208
  2. REVATIO (SILDENAFIL CITRATE) (TABLETS) [Concomitant]
  3. FUROSEMIDE (FUROSEMIDE) (TABLETS) [Concomitant]
  4. LETAIRIS [Concomitant]
  5. COUMADIN [Concomitant]
  6. PROTONIX [Concomitant]
  7. FISH OIL (FISH OIL) (CAPSULES) [Concomitant]
  8. ACETAMINOPHEN (PARACETAMOL) (TABLETS) [Concomitant]
  9. ALBUTEROL [Concomitant]
  10. SALINE NASAL SPRAY [Concomitant]

REACTIONS (7)
  - CARDIAC ARREST [None]
  - CIRCULATORY COLLAPSE [None]
  - DRUG ADMINISTRATION ERROR [None]
  - HAEMOGLOBIN DECREASED [None]
  - POLYCYTHAEMIA [None]
  - PULMONARY ARTERIAL HYPERTENSION [None]
  - UNRESPONSIVE TO STIMULI [None]
